FAERS Safety Report 10214120 (Version 1)
Quarter: 2014Q2

REPORT INFORMATION
  Report Type: Spontaneous
  Country: CN (occurrence: CN)
  Receive Date: 20140603
  Receipt Date: 20140603
  Transmission Date: 20141212
  Serious: Yes (Other)
  Sender: FDA-Public Use
  Company Number: CN-ASTRAZENECA-2014SE38509

PATIENT
  Age: 432 Month
  Sex: Female
  Weight: 60 kg

DRUGS (1)
  1. ESOMEPRAZOLE [Suspect]
     Indication: GASTRIC ULCER
     Route: 048
     Dates: start: 20130828, end: 20130830

REACTIONS (1)
  - Anaphylactoid reaction [Recovering/Resolving]
